FAERS Safety Report 14070056 (Version 2)
Quarter: 2018Q1

REPORT INFORMATION
  Report Type: Spontaneous
  Country: CA (occurrence: CA)
  Receive Date: 20171011
  Receipt Date: 20180313
  Transmission Date: 20180508
  Serious: Yes (Other)
  Sender: FDA-Public Use
  Company Number: CA-ALVOGEN-2017-ALVOGEN-093730

PATIENT
  Sex: Male

DRUGS (2)
  1. TENORETIC [Suspect]
     Active Substance: ATENOLOL\CHLORTHALIDONE
     Indication: HYPERTENSION
     Route: 048
     Dates: end: 20130801
  2. NEXIUM [Suspect]
     Active Substance: ESOMEPRAZOLE MAGNESIUM
     Indication: DYSPEPSIA
     Route: 048

REACTIONS (16)
  - Stress [Unknown]
  - Musculoskeletal disorder [Unknown]
  - Sinus disorder [Recovering/Resolving]
  - Headache [Not Recovered/Not Resolved]
  - Gait disturbance [Not Recovered/Not Resolved]
  - Body temperature decreased [Recovered/Resolved]
  - Mood altered [Recovered/Resolved]
  - Renal disorder [Recovering/Resolving]
  - Pain [Recovering/Resolving]
  - Mental disorder [Unknown]
  - Tooth loss [Not Recovered/Not Resolved]
  - Bone disorder [Recovered/Resolved]
  - Secretion discharge [Not Recovered/Not Resolved]
  - Back disorder [Recovering/Resolving]
  - Back pain [Not Recovered/Not Resolved]
  - Loss of personal independence in daily activities [Recovering/Resolving]
